FAERS Safety Report 5140927-9 (Version None)
Quarter: 2006Q4

REPORT INFORMATION
  Report Type: 
  Country: None (occurrence: None)
  Receive Date: 20061026
  Receipt Date: 20061026
  Transmission Date: 20070319
  Serious: Yes (Life-Threatening, Hospitalization)
  Sender: FDA-Public Use
  Company Number: None

PATIENT
  Age: 64 Year
  Sex: Male
  Weight: 77 kg

DRUGS (2)
  1. IBUPROFEN [Suspect]
     Indication: PAIN
     Dosage: 400 MG Q6H PO
     Route: 048
     Dates: start: 20060609, end: 20060825
  2. ASPIRIN [Suspect]
     Indication: CARDIOVASCULAR EVENT PROPHYLAXIS
     Dosage: 81 MG DAILY PO
     Route: 048
     Dates: start: 20050916, end: 20060825

REACTIONS (4)
  - BLOOD PRESSURE DECREASED [None]
  - GASTRIC ULCER HAEMORRHAGE [None]
  - HAEMATOCRIT DECREASED [None]
  - HEART RATE INCREASED [None]
